FAERS Safety Report 24355442 (Version 1)
Quarter: 2024Q3

REPORT INFORMATION
  Report Type: Other
  Country: BR (occurrence: BR)
  Receive Date: 20240924
  Receipt Date: 20240924
  Transmission Date: 20241017
  Serious: Yes (Other)
  Sender: TOLMAR
  Company Number: BR-TOLMAR, INC.-24BR052310

PATIENT
  Sex: Female

DRUGS (4)
  1. ELIGARD [Suspect]
     Active Substance: LEUPROLIDE ACETATE
     Indication: Precocious puberty
     Dosage: 45 MILLIGRAM, Q 6 MONTH
     Route: 058
     Dates: start: 20240212
  2. ELIGARD [Suspect]
     Active Substance: LEUPROLIDE ACETATE
     Dosage: 45 MILLIGRAM, Q 6 MONTH
     Route: 058
  3. ELIGARD [Suspect]
     Active Substance: LEUPROLIDE ACETATE
     Indication: Precocious puberty
     Dosage: UNK
  4. LEUPROLIDE ACETATE [Concomitant]
     Active Substance: ISOPROPYL ALCOHOL\LEUPROLIDE ACETATE
     Indication: Product used for unknown indication
     Dosage: 3.75 MILLIGRAM
     Dates: start: 20240731

REACTIONS (2)
  - Epiphyses premature fusion [Unknown]
  - Uterine enlargement [Unknown]

NARRATIVE: CASE EVENT DATE: 20240101
